FAERS Safety Report 4716318-9 (Version None)
Quarter: 2005Q3

REPORT INFORMATION
  Report Type: 
  Country: None (occurrence: None)
  Receive Date: 20050711
  Receipt Date: 20050407
  Transmission Date: 20060218
  Serious: Yes (Other)
  Sender: FDA-Public Use
  Company Number: 401485

PATIENT

DRUGS (1)
  1. CELLCEPT [Suspect]
     Dosage: 4500 MG DAILY ORAL
     Route: 048

REACTIONS (2)
  - BONE MARROW DEPRESSION [None]
  - OVERDOSE [None]
